FAERS Safety Report 11411414 (Version 1)
Quarter: 2015Q3

REPORT INFORMATION
  Report Type: Report from Study
  Country: US (occurrence: US)
  Receive Date: 20150824
  Receipt Date: 20150824
  Transmission Date: 20151125
  Serious: Yes (Hospitalization, Other)
  Sender: FDA-Public Use
  Company Number: US-ABBVIE-15P-163-1447324-00

PATIENT
  Age: 27 Year
  Sex: Female
  Weight: 138.47 kg

DRUGS (4)
  1. MIRALAX [Concomitant]
     Active Substance: POLYETHYLENE GLYCOL 3350
     Indication: PRODUCT USED FOR UNKNOWN INDICATION
  2. VYVANSE [Concomitant]
     Active Substance: LISDEXAMFETAMINE DIMESYLATE
     Indication: PRODUCT USED FOR UNKNOWN INDICATION
  3. VALTREX [Concomitant]
     Active Substance: VALACYCLOVIR HYDROCHLORIDE
     Indication: PRODUCT USED FOR UNKNOWN INDICATION
  4. LUPRON DEPOT-PED [Suspect]
     Active Substance: LEUPROLIDE ACETATE
     Indication: PRECOCIOUS PUBERTY
     Route: 050
     Dates: start: 1994, end: 1997

REACTIONS (13)
  - Abdominal pain [Not Recovered/Not Resolved]
  - Uterine inflammation [Unknown]
  - Uterine adhesions [Unknown]
  - Intestinal obstruction [Unknown]
  - Haemorrhage [Unknown]
  - Appendix disorder [Unknown]
  - Herpes simplex [Unknown]
  - Weight decreased [Not Recovered/Not Resolved]
  - Attention deficit/hyperactivity disorder [Unknown]
  - Pelvic fluid collection [Unknown]
  - Abdominal pain lower [Unknown]
  - Muscle spasms [Unknown]
  - Pelvic pain [Unknown]

NARRATIVE: CASE EVENT DATE: 2014
